FAERS Safety Report 4885716-5 (Version None)
Quarter: 2006Q1

REPORT INFORMATION
  Report Type: 
  Country: None (occurrence: None)
  Receive Date: 20060120
  Receipt Date: 20060112
  Transmission Date: 20060701
  Serious: Yes (Hospitalization)
  Sender: FDA-Public Use
  Company Number: US-JNJFOC-20060102791

PATIENT
  Sex: Female
  Weight: 65.32 kg

DRUGS (23)
  1. INFLIXIMAB [Suspect]
     Route: 042
  2. INFLIXIMAB [Suspect]
     Route: 042
  3. INFLIXIMAB [Suspect]
     Route: 042
  4. INFLIXIMAB [Suspect]
     Route: 042
  5. INFLIXIMAB [Suspect]
     Route: 042
  6. INFLIXIMAB [Suspect]
     Route: 042
  7. INFLIXIMAB [Suspect]
     Route: 042
  8. INFLIXIMAB [Suspect]
     Route: 042
  9. INFLIXIMAB [Suspect]
     Route: 042
  10. INFLIXIMAB [Suspect]
     Route: 042
  11. INFLIXIMAB [Suspect]
     Route: 042
  12. INFLIXIMAB [Suspect]
     Route: 042
  13. INFLIXIMAB [Suspect]
     Route: 042
  14. INFLIXIMAB [Suspect]
     Route: 042
  15. INFLIXIMAB [Suspect]
     Route: 042
  16. INFLIXIMAB [Suspect]
     Route: 042
  17. INFLIXIMAB [Suspect]
     Indication: CROHN'S DISEASE
     Route: 042
  18. AZATHIOPRINE [Suspect]
     Indication: CROHN'S DISEASE
  19. ANTISPASMODIC [Suspect]
     Indication: CROHN'S DISEASE
  20. NARCOTIC ANALGESICS [Suspect]
     Indication: CROHN'S DISEASE
  21. ANTIDEPRESSANTS [Suspect]
     Indication: CROHN'S DISEASE
  22. PREDNISONE [Suspect]
     Indication: CROHN'S DISEASE
  23. ANTIBIOTICS [Suspect]
     Indication: CROHN'S DISEASE

REACTIONS (4)
  - CROHN'S DISEASE [None]
  - DIVERTICULITIS [None]
  - FEMALE GENITAL TRACT FISTULA [None]
  - LUNG ABSCESS [None]
